FAERS Safety Report 9925632 (Version 3)
Quarter: 2014Q4

REPORT INFORMATION
  Report Type: Spontaneous
  Country: US (occurrence: US)
  Receive Date: 20140226
  Receipt Date: 20141023
  Transmission Date: 20150529
  Serious: Yes (Hospitalization, Other)
  Sender: FDA-Public Use
  Company Number: US-GLAXOSMITHKLINE-A1061544A

PATIENT
  Sex: Female

DRUGS (10)
  1. AVANDAMET [Suspect]
     Active Substance: METFORMIN HYDROCHLORIDE\ROSIGLITAZONE MALEATE
     Indication: BLOOD GLUCOSE INCREASED
     Dosage: 4MG/1000MG
     Dates: start: 2006, end: 2011
  2. ATENOLOL. [Concomitant]
     Active Substance: ATENOLOL
  3. DIOVAN [Concomitant]
     Active Substance: VALSARTAN
  4. METFORMIN HCL [Concomitant]
     Active Substance: METFORMIN HYDROCHLORIDE
  5. EFFEXOR [Concomitant]
     Active Substance: VENLAFAXINE HYDROCHLORIDE
  6. TRIAMCINOLONE [Concomitant]
     Active Substance: TRIAMCINOLONE
  7. AVANDIA [Suspect]
     Active Substance: ROSIGLITAZONE MALEATE
     Indication: BLOOD GLUCOSE INCREASED
     Dosage: 4 MG, BID
     Route: 048
     Dates: end: 2006
  8. HYDROCODONE [Concomitant]
     Active Substance: HYDROCODONE
  9. SKELAXIN [Concomitant]
     Active Substance: METAXALONE
  10. BYETTA [Concomitant]
     Active Substance: EXENATIDE

REACTIONS (7)
  - Hypertension [Not Recovered/Not Resolved]
  - Lung disorder [Not Recovered/Not Resolved]
  - Cardiac disorder [Not Recovered/Not Resolved]
  - Blood cholesterol increased [Not Recovered/Not Resolved]
  - Cardiac operation [Not Recovered/Not Resolved]
  - Palpitations [Not Recovered/Not Resolved]
  - Lung operation [Unknown]
